FAERS Safety Report 9811291 (Version 1)
Quarter: 2014Q1

REPORT INFORMATION
  Report Type: Spontaneous
  Country: US (occurrence: US)
  Receive Date: 20140110
  Receipt Date: 20140110
  Transmission Date: 20141002
  Serious: Yes (Other)
  Sender: FDA-Public Use
  Company Number: US-SANOFI-AVENTIS-2013SA038434

PATIENT
  Age: 81 Year
  Sex: Male

DRUGS (14)
  1. PLAVIX [Suspect]
  2. SPRYCEL [Concomitant]
  3. PROCHLORPERAZINE [Concomitant]
     Dates: start: 201212
  4. UNKNOWDRUG [Concomitant]
     Indication: ANGINA PECTORIS
  5. ASPIRIN [Concomitant]
  6. HYDRAZINE [Concomitant]
  7. TAMSULOSIN [Concomitant]
  8. LIPITOR [Concomitant]
  9. CAPTOPRIL [Concomitant]
  10. TOPROL XL [Concomitant]
  11. SPIRIVA [Concomitant]
  12. SYMBICORT [Concomitant]
  13. NOVOLOG [Concomitant]
     Dosage: DOSE:10 UNIT(S)
  14. LANTUS [Concomitant]
     Dosage: DOSE:15 UNIT(S)

REACTIONS (5)
  - Myocardial infarction [Unknown]
  - Hypoacusis [Unknown]
  - Abdominal discomfort [Unknown]
  - Nausea [Unknown]
  - Decreased appetite [Unknown]
